FAERS Safety Report 16890136 (Version 3)
Quarter: 2019Q4

REPORT INFORMATION
  Report Type: Report from Study
  Country: CN (occurrence: CN)
  Receive Date: 20191007
  Receipt Date: 20191210
  Transmission Date: 20200122
  Serious: Yes (Hospitalization)
  Sender: FDA-Public Use
  Company Number: CN-TEVA-2019-CN-1114203

PATIENT
  Age: 79 Year
  Sex: Female
  Weight: 71 kg

DRUGS (10)
  1. ROTIGOTINE PATCHES [Concomitant]
     Dosage: 9 MILLIGRAM DAILY;
     Route: 061
  2. MADOPAR TABLETS [Concomitant]
     Indication: PARKINSON^S DISEASE
     Dosage: 750 MILLIGRAM DAILY;
     Route: 048
     Dates: start: 2014
  3. LIPITOR TABLETS [Concomitant]
     Indication: PROPHYLAXIS
     Dosage: 10 MILLIGRAM DAILY;
     Route: 048
     Dates: start: 2019
  4. AMANTADINE TABLETS [Concomitant]
     Indication: PARKINSON^S DISEASE
     Dosage: 100 MILLIGRAM DAILY;
     Route: 048
     Dates: start: 20190923
  5. SIFROL TABLETS [Concomitant]
     Indication: PARKINSON^S DISEASE
     Dosage: .75 MILLIGRAM DAILY;
     Route: 048
     Dates: start: 20190923
  6. TELMISARTAN TABLETS [Concomitant]
     Active Substance: TELMISARTAN
     Indication: HYPERTENSION
     Dosage: 80 MILLIGRAM DAILY;
     Route: 048
     Dates: start: 1994
  7. AZILECT [Suspect]
     Active Substance: RASAGILINE MESYLATE
     Indication: PARKINSON^S DISEASE
     Dosage: 1 MILLIGRAM DAILY;
     Route: 048
     Dates: start: 20190829, end: 20190924
  8. COMTAN TABLETS [Concomitant]
     Indication: PARKINSON^S DISEASE
     Dosage: 600 MILLIGRAM DAILY;
     Route: 048
     Dates: start: 20190923
  9. CITICOLINE SODIUM INJECTION [Concomitant]
     Dosage: .5 GRAM DAILY;
     Route: 041
     Dates: start: 20190923, end: 20190927
  10. LEVAMLODIPING BESYLATE TABLETS [Concomitant]
     Indication: HYPERTENSION
     Dosage: 2.5 MILLIGRAM DAILY;
     Route: 048
     Dates: start: 1994

REACTIONS (1)
  - Illusion [Not Recovered/Not Resolved]

NARRATIVE: CASE EVENT DATE: 20190918
